FAERS Safety Report 6730789-8 (Version None)
Quarter: 2010Q2

REPORT INFORMATION
  Report Type: 
  Country: None (occurrence: None)
  Receive Date: 20100518
  Receipt Date: 20100513
  Transmission Date: 20101027
  Serious: Yes (Other)
  Sender: FDA-Public Use
  Company Number: US-BRISTOL-MYERS SQUIBB COMPANY-15105620

PATIENT
  Age: 42 Year
  Sex: Female

DRUGS (1)
  1. KENALOG [Suspect]
     Indication: GRANULOMA ANNULARE
     Dosage: VIA DERMOJET INJECTION
     Dates: start: 20100506

REACTIONS (3)
  - CELLULITIS [None]
  - INJECTION SITE DISCOLOURATION [None]
  - INJECTION SITE PAIN [None]
